FAERS Safety Report 5895227-6 (Version None)
Quarter: 2008Q3

REPORT INFORMATION
  Report Type: 
  Country: None (occurrence: None)
  Receive Date: 20080924
  Receipt Date: 20080918
  Transmission Date: 20090109
  Serious: Yes (Disabling, Other)
  Sender: FDA-Public Use
  Company Number: A0748150A

PATIENT
  Age: 59 Year
  Sex: Female

DRUGS (4)
  1. EPZICOM [Suspect]
     Indication: HIV INFECTION
     Dosage: 1TAB PER DAY
     Route: 048
     Dates: start: 20080725, end: 20080911
  2. BACTRIM [Concomitant]
  3. PREDNISONE [Concomitant]
  4. EPIVIR [Concomitant]

REACTIONS (3)
  - HEPATIC ENZYME INCREASED [None]
  - RASH PRURITIC [None]
  - SWELLING FACE [None]
